FAERS Safety Report 9256917 (Version 1)
Quarter: 2013Q2

REPORT INFORMATION
  Report Type: Report from Study
  Country: FR (occurrence: FR)
  Receive Date: 20130426
  Receipt Date: 20130426
  Transmission Date: 20140414
  Serious: Yes (Hospitalization)
  Sender: FDA-Public Use
  Company Number: FR-ROCHE-1218526

PATIENT
  Age: 48 Year
  Sex: Male

DRUGS (6)
  1. PEG-INTERFERON ALFA 2A [Suspect]
     Indication: CHRONIC HEPATITIS C
     Route: 058
     Dates: start: 20091216
  2. RIBAVIRIN [Suspect]
     Indication: CHRONIC HEPATITIS C
     Route: 048
     Dates: start: 20091216, end: 20101118
  3. EPOETIN BETA [Suspect]
     Indication: PRODUCT USED FOR UNKNOWN INDICATION
     Route: 065
  4. OFLOXACIN [Concomitant]
     Route: 048
     Dates: start: 20121218
  5. METRONIDAZOL [Concomitant]
     Route: 048
     Dates: start: 20110126, end: 20110206
  6. AMOXICILLIN/CLAVULANIC ACID [Concomitant]
     Route: 048
     Dates: start: 20110126, end: 20110206

REACTIONS (2)
  - Orchitis [Recovered/Resolved with Sequelae]
  - Orchidectomy [Unknown]
